FAERS Safety Report 14973624 (Version 3)
Quarter: 2018Q3

REPORT INFORMATION
  Report Type: Spontaneous
  Country: US (occurrence: US)
  Receive Date: 20180605
  Receipt Date: 20180925
  Transmission Date: 20181010
  Serious: Yes (Death, Other)
  Sender: FDA-Public Use
  Company Number: US-ASTELLAS-2018US025055

PATIENT
  Age: 76 Year
  Sex: Male

DRUGS (1)
  1. XTANDI [Suspect]
     Active Substance: ENZALUTAMIDE
     Indication: PROSTATE CANCER
     Route: 048
     Dates: start: 20180207, end: 201808

REACTIONS (6)
  - Consciousness fluctuating [Unknown]
  - Death [Fatal]
  - Orthostatic hypotension [Unknown]
  - Movement disorder [Unknown]
  - Dizziness postural [Unknown]
  - Dysarthria [Unknown]

NARRATIVE: CASE EVENT DATE: 201804
